FAERS Safety Report 7102876-6 (Version None)
Quarter: 2010Q4

REPORT INFORMATION
  Report Type: 
  Country: None (occurrence: None)
  Receive Date: 20101115
  Receipt Date: 20101102
  Transmission Date: 20110411
  Serious: Yes (Other)
  Sender: FDA-Public Use
  Company Number: US-ELI_LILLY_AND_COMPANY-US201009006548

PATIENT
  Sex: Female
  Weight: 66.667 kg

DRUGS (2)
  1. FORTEO [Suspect]
  2. VAGIFEM [Concomitant]
     Dosage: UNK, 3/W
     Route: 067

REACTIONS (1)
  - CEREBRAL ISCHAEMIA [None]
